FAERS Safety Report 5869331-2 (Version None)
Quarter: 2008Q3

REPORT INFORMATION
  Report Type: 
  Country: None (occurrence: None)
  Receive Date: 20080903
  Receipt Date: 20080826
  Transmission Date: 20090109
  Serious: Yes (Other)
  Sender: FDA-Public Use
  Company Number: US-GENENTECH-266933

PATIENT
  Age: 80 Year
  Sex: Female

DRUGS (5)
  1. LUCENTIS [Suspect]
     Indication: CHOROIDAL NEOVASCULARISATION
     Route: 031
  2. AVASTIN [Suspect]
     Indication: CHOROIDAL NEOVASCULARISATION
     Dosage: 1.25 MG, UNK
     Route: 031
  3. VERTEPORFIN [Suspect]
     Indication: CHOROIDAL NEOVASCULARISATION
     Route: 042
  4. TRIAMCINOLONE [Suspect]
     Indication: CHOROIDAL NEOVASCULARISATION
     Dosage: 2 MG, UNK
     Route: 031
  5. MACUGEN [Suspect]
     Indication: CHOROIDAL NEOVASCULARISATION

REACTIONS (1)
  - MACULAR OEDEMA [None]
